FAERS Safety Report 8933045 (Version 3)
Quarter: 2013Q1

REPORT INFORMATION
  Report Type: Spontaneous
  Country: US (occurrence: US)
  Receive Date: 20121129
  Receipt Date: 20130109
  Transmission Date: 20140127
  Serious: Yes (Death)
  Sender: FDA-Public Use
  Company Number: PHEH2012US023259

PATIENT
  Age: 80 Year
  Sex: Male

DRUGS (4)
  1. GLEEVEC [Suspect]
     Indication: GASTROINTESTINAL STROMAL TUMOUR
     Dosage: 400 MG, QD
     Route: 048
     Dates: start: 20121101, end: 20121107
  2. VITAMIN B12 [Concomitant]
     Dosage: UNK UKN, UNK
  3. IRON [Concomitant]
     Dosage: UNK UKN, UNK
  4. ANTI-PARKINSON AGENTS [Concomitant]
     Dosage: UNK UKN, UNK

REACTIONS (1)
  - Death [Fatal]
